FAERS Safety Report 6866570-9 (Version None)
Quarter: 2010Q2

REPORT INFORMATION
  Report Type: 
  Country: None (occurrence: None)
  Receive Date: 20100603
  Receipt Date: 20100201
  Transmission Date: 20101027
  Serious: Yes (Hospitalization)
  Sender: FDA-Public Use
  Company Number: AUR-APL-2010-00627

PATIENT
  Age: 76 Year
  Sex: Female

DRUGS (2)
  1. ZOLPIDEM [Suspect]
  2. ALPRAZOLAM [Suspect]

REACTIONS (1)
  - URINARY TRACT INFECTION [None]
